FAERS Safety Report 9686855 (Version 1)
Quarter: 2013Q4

REPORT INFORMATION
  Report Type: Spontaneous
  Country: US (occurrence: US)
  Receive Date: 20131113
  Receipt Date: 20131113
  Transmission Date: 20140711
  Serious: Yes (Hospitalization)
  Sender: FDA-Public Use
  Company Number: US-B.I. PHARMACEUTICALS,INC./RIDGEFIELD-2013-BI-36454BP

PATIENT
  Age: 84 Year
  Sex: Female
  Weight: 47 kg

DRUGS (1)
  1. COMBIVENT [Suspect]
     Dates: start: 1996, end: 201110

REACTIONS (5)
  - Myocardial infarction [Recovered/Resolved]
  - Pneumonia [Recovered/Resolved]
  - Clostridium difficile infection [Recovered/Resolved]
  - Dyspnoea [Not Recovered/Not Resolved]
  - Arthritis [Not Recovered/Not Resolved]
